FAERS Safety Report 10225361 (Version 2)
Quarter: 2014Q2

REPORT INFORMATION
  Report Type: Report from Study
  Country: KR (occurrence: KR)
  Receive Date: 20140609
  Receipt Date: 20140612
  Transmission Date: 20141212
  Serious: Yes (Hospitalization, Disabling)
  Sender: FDA-Public Use
  Company Number: KR-ROCHE-1410576

PATIENT
  Age: 26 Year
  Sex: Male
  Weight: 51.7 kg

DRUGS (6)
  1. MYCOPHENOLATE MOFETIL [Suspect]
     Indication: IMMUNOSUPPRESSION
     Dosage: 1000MG IN THE MORNING AND 750MG IN THE EVENING
     Route: 048
     Dates: start: 20081231, end: 20100429
  2. MYCOPHENOLATE MOFETIL [Suspect]
     Route: 048
     Dates: start: 20100430, end: 20100505
  3. MYCOPHENOLATE MOFETIL [Suspect]
     Route: 048
     Dates: start: 20100506
  4. TOFACITINIB CITRATE [Suspect]
     Indication: TRANSPLANT REJECTION
     Route: 048
     Dates: start: 20091027, end: 20100510
  5. TOFACITINIB CITRATE [Suspect]
     Route: 048
     Dates: start: 20100511, end: 20101105
  6. CALCORT [Suspect]
     Indication: TRANSPLANT REJECTION
     Route: 048
     Dates: start: 20090603

REACTIONS (1)
  - Endophthalmitis [Recovered/Resolved with Sequelae]
